FAERS Safety Report 21126178 (Version 4)
Quarter: 2022Q3

REPORT INFORMATION
  Report Type: Spontaneous
  Country: JP (occurrence: JP)
  Receive Date: 20220725
  Receipt Date: 20220920
  Transmission Date: 20221027
  Serious: Yes (Hospitalization)
  Sender: FDA-Public Use
  Company Number: JP-ELI_LILLY_AND_COMPANY-JP202207005688

PATIENT
  Age: 66 Year
  Sex: Male

DRUGS (9)
  1. TRULICITY [Suspect]
     Active Substance: DULAGLUTIDE
     Indication: Product used for unknown indication
     Dosage: 0.75 MG, WEEKLY (1/W)
     Route: 058
  2. IMEGLIMIN [Concomitant]
     Active Substance: IMEGLIMIN
     Indication: Mitochondrial cytopathy
     Dosage: 2000 MG, DAILY
     Route: 065
     Dates: start: 20210921
  3. IPRAGLIFLOZIN L-PROLINE [Concomitant]
     Active Substance: IPRAGLIFLOZIN L-PROLINE
  4. AMARYL [Concomitant]
     Active Substance: GLIMEPIRIDE
  5. METGLUCO [Concomitant]
     Active Substance: METFORMIN HYDROCHLORIDE
     Dosage: 750 MG, DAILY
  6. MIGLITOL [Concomitant]
     Active Substance: MIGLITOL
     Dosage: UNK UNK, DAILY
  7. ACTOS [Concomitant]
     Active Substance: PIOGLITAZONE HYDROCHLORIDE
  8. HARNAL [Concomitant]
     Active Substance: TAMSULOSIN HYDROCHLORIDE
  9. LIVALO [Concomitant]
     Active Substance: PITAVASTATIN CALCIUM

REACTIONS (1)
  - Lung carcinoma cell type unspecified stage III [Unknown]

NARRATIVE: CASE EVENT DATE: 20220101
